FAERS Safety Report 5274260-1 (Version None)
Quarter: 2007Q1

REPORT INFORMATION
  Report Type: 
  Country: None (occurrence: None)
  Receive Date: 20070323
  Receipt Date: 20070314
  Transmission Date: 20070707
  Serious: Yes (Other)
  Sender: FDA-Public Use
  Company Number: CA-JNJFOC-20070201834

PATIENT
  Age: 70 Year
  Sex: Female

DRUGS (12)
  1. LEVAQUIN [Suspect]
     Indication: DRUG USE FOR UNKNOWN INDICATION
     Route: 048
  2. HALOPERIDOL [Suspect]
     Indication: DRUG USE FOR UNKNOWN INDICATION
     Route: 042
  3. ASPIRIN [Concomitant]
     Route: 048
  4. DOCUSATE [Concomitant]
     Route: 048
  5. HYDROMORPH CONTIN [Concomitant]
     Route: 048
  6. HYZAAR [Concomitant]
     Route: 048
  7. LOVASTATIN [Concomitant]
     Route: 048
  8. METHADONE HCL [Concomitant]
     Route: 048
  9. OXYBUTYNIN CHLORIDE [Concomitant]
     Route: 048
  10. PANTOPRAZOLE SODIUM [Concomitant]
     Route: 048
  11. SENOKOT [Concomitant]
     Route: 065
  12. NYSTATIN [Concomitant]
     Route: 065

REACTIONS (6)
  - AGGRESSION [None]
  - ALANINE AMINOTRANSFERASE INCREASED [None]
  - ASPARTATE AMINOTRANSFERASE INCREASED [None]
  - CONFUSIONAL STATE [None]
  - ELECTROCARDIOGRAM QT PROLONGED [None]
  - VENTRICULAR TACHYCARDIA [None]
